FAERS Safety Report 23064200 (Version 2)
Quarter: 2023Q4

REPORT INFORMATION
  Report Type: Spontaneous
  Country: US (occurrence: US)
  Receive Date: 20231013
  Receipt Date: 20231215
  Transmission Date: 20240110
  Serious: Yes (Other)
  Sender: FDA-Public Use
  Company Number: US-REGENERON PHARMACEUTICALS, INC.-2023-123594

PATIENT
  Sex: Male

DRUGS (2)
  1. PRALUENT [Suspect]
     Active Substance: ALIROCUMAB
     Indication: Hypercholesterolaemia
     Dosage: 75 MG
     Route: 058
     Dates: start: 2020, end: 2021
  2. PRALUENT [Suspect]
     Active Substance: ALIROCUMAB
     Dosage: 150 MG, Q2W
     Route: 058
     Dates: start: 2021

REACTIONS (6)
  - Dementia Alzheimer^s type [Unknown]
  - Myocardial infarction [Unknown]
  - Injection site discharge [Unknown]
  - Fear of injection [Unknown]
  - Injection site pain [Unknown]
  - Inappropriate schedule of product administration [Unknown]
